FAERS Safety Report 15051495 (Version 1)
Quarter: 2018Q2

REPORT INFORMATION
  Report Type: Spontaneous
  Country: US (occurrence: US)
  Receive Date: 20180622
  Receipt Date: 20180622
  Transmission Date: 20180711
  Serious: Yes (Other)
  Sender: FDA-Public Use
  Company Number: US-ZO SKIN HEALTH-2018ZOS00008

PATIENT
  Age: 56 Year
  Sex: Female

DRUGS (1)
  1. TRETINOIN. [Suspect]
     Active Substance: TRETINOIN
     Indication: ACUTE PROMYELOCYTIC LEUKAEMIA
     Route: 065

REACTIONS (1)
  - Acute promyelocytic leukaemia differentiation syndrome [Recovered/Resolved]
